FAERS Safety Report 8246905-5 (Version None)
Quarter: 2012Q1

REPORT INFORMATION
  Report Type: 
  Country: None (occurrence: None)
  Receive Date: 20120330
  Receipt Date: 20120323
  Transmission Date: 20120608
  Serious: Yes (Other)
  Sender: FDA-Public Use
  Company Number: JP-PFIZER INC-2012031805

PATIENT
  Age: 80 Year
  Sex: Female

DRUGS (5)
  1. DONEPEZIL HCL [Suspect]
     Indication: DEMENTIA ALZHEIMER'S TYPE
     Dosage: 5 MG DAILY
     Route: 048
  2. ATORVASTATIN CALCIUM [Interacting]
     Dosage: 10 MG DAILY
     Route: 048
  3. BENIDIPINE [Interacting]
     Dosage: 8 MG DAILY
     Route: 048
  4. ALFACALCIDOL [Suspect]
     Dosage: 0.5 UG DAILY
     Route: 048
  5. RISEDRONATE SODIUM [Suspect]
     Dosage: 17.5 MG, ONCE PER WEEK
     Route: 048

REACTIONS (3)
  - ELECTROCARDIOGRAM QT PROLONGED [None]
  - ELECTROCARDIOGRAM QT INTERVAL ABNORMAL [None]
  - DRUG INTERACTION [None]
